FAERS Safety Report 24042853 (Version 1)
Quarter: 2024Q3

REPORT INFORMATION
  Report Type: Spontaneous
  Country: BR (occurrence: None)
  Receive Date: 20240702
  Receipt Date: 20240702
  Transmission Date: 20241016
  Serious: Yes (Other)
  Sender: ASTRAZENECA
  Company Number: 2024A148144

PATIENT
  Age: 51 Year
  Sex: Female

DRUGS (4)
  1. TAGRISSO [Suspect]
     Active Substance: OSIMERTINIB
     Route: 048
  2. PEGFILGRASTIM [Concomitant]
     Active Substance: PEGFILGRASTIM
     Dosage: 6.0MG UNKNOWN
  3. CARBOPLATIN [Concomitant]
     Active Substance: CARBOPLATIN
     Dosage: 5 AUC
  4. PEMETREXED [Concomitant]
     Active Substance: PEMETREXED
     Dosage: 500.0MG/M2 UNKNOWN

REACTIONS (6)
  - Toxicity to various agents [Unknown]
  - Anaemia [Unknown]
  - Mucosal inflammation [Unknown]
  - Neutropenia [Recovered/Resolved]
  - Diarrhoea [Unknown]
  - Paronychia [Unknown]
